FAERS Safety Report 12290470 (Version 1)
Quarter: 2016Q2

REPORT INFORMATION
  Report Type: Spontaneous
  Country: US (occurrence: US)
  Receive Date: 20160421
  Receipt Date: 20160421
  Transmission Date: 20160815
  Serious: Yes (Other)
  Sender: FDA-Public Use
  Company Number: US-ENDO PHARMACEUTICALS INC.-2015-000952

PATIENT
  Sex: Male

DRUGS (2)
  1. CLONIDINE HCL TABLETS 0.2MG [Suspect]
     Active Substance: CLONIDINE HYDROCHLORIDE
     Indication: PRODUCT USED FOR UNKNOWN INDICATION
     Route: 065
     Dates: start: 2015
  2. CLONIDINE HCL TABLETS 0.2MG [Suspect]
     Active Substance: CLONIDINE HYDROCHLORIDE
     Route: 065
     Dates: start: 201504, end: 2015

REACTIONS (2)
  - Syncope [Unknown]
  - Enuresis [Unknown]

NARRATIVE: CASE EVENT DATE: 201504
